FAERS Safety Report 7017564-4 (Version None)
Quarter: 2010Q3

REPORT INFORMATION
  Report Type: 
  Country: None (occurrence: None)
  Receive Date: 20100928
  Receipt Date: 20100921
  Transmission Date: 20110219
  Serious: Yes (Other)
  Sender: FDA-Public Use
  Company Number: US-ASTRAZENECA-2007UW12114

PATIENT
  Age: 17638 Day
  Sex: Male
  Weight: 141.1 kg

DRUGS (28)
  1. SEROQUEL [Suspect]
     Indication: DEPRESSION
     Dosage: 100-300MG
     Route: 048
     Dates: start: 20040101
  2. SEROQUEL [Suspect]
     Indication: SLEEP DISORDER
     Dosage: 100-300MG
     Route: 048
     Dates: start: 20040101
  3. SEROQUEL [Suspect]
     Indication: SCHIZOPHRENIA
     Dosage: 100-300MG
     Route: 048
     Dates: start: 20040101
  4. SEROQUEL [Suspect]
     Dosage: 100 MG TO 400 MG
     Route: 048
     Dates: start: 20040224
  5. SEROQUEL [Suspect]
     Dosage: 100 MG TO 400 MG
     Route: 048
     Dates: start: 20040224
  6. SEROQUEL [Suspect]
     Dosage: 100 MG TO 400 MG
     Route: 048
     Dates: start: 20040224
  7. SEROQUEL [Suspect]
     Route: 048
     Dates: start: 20050601, end: 20060101
  8. SEROQUEL [Suspect]
     Route: 048
     Dates: start: 20050601, end: 20060101
  9. SEROQUEL [Suspect]
     Route: 048
     Dates: start: 20050601, end: 20060101
  10. METFORMIN [Concomitant]
     Dosage: 500 MG TO 1000 MG
     Dates: start: 20040825
  11. AVANDIA [Concomitant]
     Dates: start: 20040825
  12. METOPROLOL TARTRATE [Concomitant]
     Dosage: 25 MG TO 50 MG
     Dates: start: 20040825
  13. ZYPREXA [Concomitant]
     Indication: DEPRESSION
     Dates: start: 20000228
  14. ZYPREXA [Concomitant]
     Indication: SCHIZOPHRENIA
     Dates: start: 20000228
  15. ZYPREXA [Concomitant]
     Dates: start: 20030201, end: 20030801
  16. ZYPREXA [Concomitant]
     Dates: start: 20030201, end: 20030801
  17. ZYPREXA [Concomitant]
     Dates: start: 20031101, end: 20040101
  18. ZYPREXA [Concomitant]
     Dates: start: 20031101, end: 20040101
  19. VERAPAMIL [Concomitant]
     Dates: start: 20031114
  20. HYDROCHLOROTHIAZIDE [Concomitant]
     Dates: start: 20031114
  21. ZOCOR [Concomitant]
     Dates: start: 20040825
  22. GEODON [Concomitant]
     Dates: start: 20030714
  23. ABILIFY [Concomitant]
     Dates: start: 20040527
  24. ABILIFY [Concomitant]
     Dates: start: 20040807, end: 20040913
  25. ABILIFY [Concomitant]
     Dates: start: 20041001, end: 20050826
  26. ABILIFY [Concomitant]
     Dates: start: 20050829, end: 20060123
  27. CLOZARIL [Concomitant]
     Dosage: 100-200 MG
     Dates: start: 20060330, end: 20070314
  28. PROBENECID [Concomitant]
     Dates: start: 20040825

REACTIONS (3)
  - NEUROPATHY PERIPHERAL [None]
  - POLYNEUROPATHY ALCOHOLIC [None]
  - TYPE 2 DIABETES MELLITUS [None]
